FAERS Safety Report 9817318 (Version 4)
Quarter: 2014Q2

REPORT INFORMATION
  Report Type: Spontaneous
  Country: IT (occurrence: IT)
  Receive Date: 20140115
  Receipt Date: 20140407
  Transmission Date: 20141212
  Serious: Yes (Hospitalization)
  Sender: FDA-Public Use
  Company Number: IT-ROCHE-1332619

PATIENT
  Age: 55 Year
  Sex: Male

DRUGS (3)
  1. RIVOTRIL [Suspect]
     Indication: DEPRESSION
     Route: 048
     Dates: start: 20140107, end: 20140107
  2. RIVOTRIL [Suspect]
     Route: 048
     Dates: start: 20140110, end: 20140110
  3. SERTRALINE [Suspect]
     Indication: DEPRESSION
     Route: 048
     Dates: start: 20140110, end: 20140110

REACTIONS (9)
  - Agitation [Recovered/Resolved]
  - Confusional state [Recovered/Resolved]
  - Disorientation [Recovered/Resolved]
  - Sopor [Recovered/Resolved]
  - Intentional overdose [Unknown]
  - Bradykinesia [Recovering/Resolving]
  - Bradyphrenia [Recovering/Resolving]
  - Intentional self-injury [Recovering/Resolving]
  - Drug abuse [Recovering/Resolving]
